FAERS Safety Report 13651040 (Version 2)
Quarter: 2017Q2

REPORT INFORMATION
  Report Type: Spontaneous
  Country: JP (occurrence: JP)
  Receive Date: 20170614
  Receipt Date: 20170622
  Transmission Date: 20170830
  Serious: Yes (Hospitalization, Other)
  Sender: FDA-Public Use
  Company Number: JP-GLAXOSMITHKLINE-JP2017JPN087719

PATIENT
  Age: 24 Year
  Sex: Female

DRUGS (2)
  1. DEPAKENE [Concomitant]
     Active Substance: VALPROIC ACID
     Dosage: UNK
  2. LAMICTAL [Suspect]
     Active Substance: LAMOTRIGINE
     Indication: EPILEPSY
     Dosage: 25 MG, QD
     Route: 048
     Dates: start: 20170523, end: 20170602

REACTIONS (7)
  - Oral pain [Unknown]
  - Stevens-Johnson syndrome [Not Recovered/Not Resolved]
  - Dyspnoea [Unknown]
  - Rash generalised [Unknown]
  - Pyrexia [Unknown]
  - Eye pain [Unknown]
  - Pruritus [Unknown]

NARRATIVE: CASE EVENT DATE: 20170602
